FAERS Safety Report 26129333 (Version 1)
Quarter: 2025Q4

REPORT INFORMATION
  Report Type: Spontaneous
  Country: US (occurrence: US)
  Receive Date: 20251208
  Receipt Date: 20251208
  Transmission Date: 20260117
  Serious: Yes (Hospitalization, Other)
  Sender: Onesource Specialty Pharma
  Company Number: US-STRIDES ARCOLAB LIMITED-2025OS001423

PATIENT
  Age: 42 Year
  Sex: Male

DRUGS (2)
  1. LOPERAMIDE HYDROCHLORIDE [Suspect]
     Active Substance: LOPERAMIDE HYDROCHLORIDE
     Indication: Drug withdrawal syndrome
     Dosage: 100 TO 200 MG/DAY
     Route: 065
  2. OXYCODONE [Concomitant]
     Active Substance: OXYCODONE
     Indication: Spinal pain
     Dosage: UNK
     Route: 065

REACTIONS (8)
  - Cardiotoxicity [None]
  - Ventricular fibrillation [None]
  - Neurotoxicity [None]
  - Long QT syndrome [None]
  - Loss of consciousness [None]
  - Seizure [None]
  - Intentional product misuse [Unknown]
  - Intentional overdose [Unknown]
